FAERS Safety Report 8260474-5 (Version None)
Quarter: 2012Q2

REPORT INFORMATION
  Report Type: 
  Country: None (occurrence: None)
  Receive Date: 20120404
  Receipt Date: 20120327
  Transmission Date: 20120825
  Serious: Yes (Disabling)
  Sender: FDA-Public Use
  Company Number: US-MERCK-0202USA02118

PATIENT
  Age: 54 Year
  Sex: Female
  Weight: 49 kg

DRUGS (10)
  1. PREMPRO [Concomitant]
     Indication: MENOPAUSAL SYMPTOMS
     Route: 065
     Dates: start: 19970101
  2. FOSAMAX [Suspect]
     Route: 048
     Dates: end: 20080101
  3. ESTRADERM [Concomitant]
     Route: 065
  4. SYNTHROID [Concomitant]
     Indication: HYPOTHYROIDISM
     Route: 048
     Dates: start: 19960101
  5. LEVOTHROID [Concomitant]
     Route: 065
  6. CYCRIN [Concomitant]
     Route: 065
  7. FOSAMAX [Suspect]
     Indication: OSTEOPOROSIS
     Route: 048
     Dates: start: 19960624, end: 20031001
  8. FOSAMAX [Suspect]
     Route: 048
     Dates: start: 20031001
  9. OGEN [Concomitant]
     Route: 065
  10. PRINZIDE [Concomitant]
     Route: 065

REACTIONS (14)
  - LOW TURNOVER OSTEOPATHY [None]
  - MYALGIA [None]
  - DRUG INEFFECTIVE [None]
  - BONE DENSITY DECREASED [None]
  - HIP FRACTURE [None]
  - STRESS FRACTURE [None]
  - NAUSEA [None]
  - ARTHRALGIA [None]
  - FEMUR FRACTURE [None]
  - ABDOMINAL PAIN UPPER [None]
  - DECREASED APPETITE [None]
  - OSTEOPOROSIS [None]
  - ALOPECIA [None]
  - OROPHARYNGEAL PAIN [None]
